FAERS Safety Report 17986167 (Version 5)
Quarter: 2020Q3

REPORT INFORMATION
  Report Type: Spontaneous
  Country: US (occurrence: US)
  Receive Date: 20200707
  Receipt Date: 20200930
  Transmission Date: 20201103
  Serious: No
  Sender: FDA-Public Use
  Company Number: US-BRISTOL-MYERS SQUIBB COMPANY-BMS-2020-052866

PATIENT
  Age: 54 Year
  Sex: Female

DRUGS (2)
  1. ORENCIA [Suspect]
     Active Substance: ABATACEPT
     Indication: ARTHROPATHY
     Dosage: 125 MILLIGRAM, QWK
     Route: 058
     Dates: start: 20200630
  2. ORENCIA [Suspect]
     Active Substance: ABATACEPT
     Dosage: 125 MG/ML ONCE EVERY OTHER WEEK
     Route: 058
     Dates: start: 20200630

REACTIONS (8)
  - Adverse event [Unknown]
  - Pruritus [Unknown]
  - Dysphagia [Unknown]
  - Oral pruritus [Unknown]
  - Throat irritation [Unknown]
  - Intentional product use issue [Unknown]
  - Ear pruritus [Unknown]
  - Pain [Unknown]

NARRATIVE: CASE EVENT DATE: 20200630
